FAERS Safety Report 4847567-7 (Version None)
Quarter: 2005Q4

REPORT INFORMATION
  Report Type: 
  Country: None (occurrence: None)
  Receive Date: 20051205
  Receipt Date: 20051118
  Transmission Date: 20060501
  Serious: Yes (Other)
  Sender: FDA-Public Use
  Company Number: 2005EN000464

PATIENT
  Age: 56 Year
  Sex: Male

DRUGS (9)
  1. ABELCET [Suspect]
     Indication: FUSARIUM INFECTION
     Dosage: 2 GM;QD;IV
     Route: 042
     Dates: start: 20000101
  2. FLUCONAZOLE [Suspect]
     Indication: FUSARIUM INFECTION
     Dosage: SEE IMAGE
     Route: 061
     Dates: start: 20000101
  3. FLUCONAZOLE [Suspect]
     Indication: FUSARIUM INFECTION
     Dosage: SEE IMAGE
     Route: 061
     Dates: start: 20000101
  4. TOBRAMYCIN [Concomitant]
  5. CHLORAMPHENICOL [Concomitant]
  6. OFLOXACIN [Concomitant]
  7. DEXAMETHASONE [Concomitant]
  8. ACETAZOLAMIDE [Concomitant]
  9. DICLOFENAC SODIUM [Concomitant]

REACTIONS (7)
  - ANGIOPATHY [None]
  - CHOROIDAL DETACHMENT [None]
  - CHOROIDAL EFFUSION [None]
  - CORNEAL ABSCESS [None]
  - CORNEAL OPACITY [None]
  - DRUG INEFFECTIVE [None]
  - INTRAOCULAR PRESSURE DECREASED [None]
